FAERS Safety Report 10312180 (Version 3)
Quarter: 2014Q3

REPORT INFORMATION
  Report Type: Spontaneous
  Country: AT (occurrence: AT)
  Receive Date: 20140718
  Receipt Date: 20140909
  Transmission Date: 20150326
  Serious: Yes (Hospitalization)
  Sender: FDA-Public Use
  Company Number: PHHY2014AT086406

PATIENT
  Age: 66 Year
  Sex: Female
  Weight: 90 kg

DRUGS (7)
  1. SIMVASTATIN. [Concomitant]
     Active Substance: SIMVASTATIN
     Dosage: 20 MG, QD
  2. DAFLON [Concomitant]
     Active Substance: DIOSMIN\HESPERIDIN
     Dosage: 500 MG, BID
  3. BLOPRESS [Concomitant]
     Active Substance: CANDESARTAN CILEXETIL
     Dosage: 16 MG, QD
  4. THYREX [Concomitant]
     Active Substance: LEVOTHYROXINE SODIUM
  5. SELOKEEN RETARD PLUS [Concomitant]
  6. METHOTREXATE (METHOTREXATE SODIUM) [Suspect]
     Active Substance: METHOTREXATE SODIUM
  7. PANTOLOC [Concomitant]
     Active Substance: PANTOPRAZOLE SODIUM
     Dosage: 40 MG, QD

REACTIONS (2)
  - Pulmonary mass [Unknown]
  - Lung adenocarcinoma stage III [Unknown]

NARRATIVE: CASE EVENT DATE: 20140620
